FAERS Safety Report 4465007-7 (Version None)
Quarter: 2004Q4

REPORT INFORMATION
  Report Type: 
  Country: None (occurrence: None)
  Receive Date: 20041004
  Receipt Date: 20040614
  Transmission Date: 20050328
  Serious: No
  Sender: FDA-Public Use
  Company Number: 374043

PATIENT
  Age: 82 Year
  Sex: Female

DRUGS (16)
  1. COREG [Suspect]
     Dosage: 3.125MG TWICE PER DAY
     Route: 048
     Dates: start: 20040414
  2. ACIPHEX [Concomitant]
  3. ALLOPURINOL [Concomitant]
  4. AMARYL [Concomitant]
  5. DILTIAZEM [Concomitant]
  6. COUMADIN [Concomitant]
  7. FUROSEMIDE [Concomitant]
  8. HYOSCYAMINE [Concomitant]
  9. LANTUS [Concomitant]
  10. LEVOXYL [Concomitant]
  11. ZAROXOLYN [Concomitant]
  12. MAGNESIUM [Concomitant]
  13. NITROGLYCERIN [Concomitant]
  14. PROPRANOLOL [Concomitant]
  15. SPIRONOLACTONE [Concomitant]
  16. FIBER-CON [Concomitant]

REACTIONS (1)
  - ABDOMINAL DISCOMFORT [None]
